FAERS Safety Report 12979569 (Version 1)
Quarter: 2016Q4

REPORT INFORMATION
  Report Type: Spontaneous
  Country: IT (occurrence: IT)
  Receive Date: 20161128
  Receipt Date: 20161128
  Transmission Date: 20170207
  Serious: Yes (Death, Other)
  Sender: FDA-Public Use
  Company Number: IT-JNJFOC-20161126834

PATIENT

DRUGS (5)
  1. CYCLOPHOSPHAMIDE. [Suspect]
     Active Substance: CYCLOPHOSPHAMIDE
     Indication: DIFFUSE LARGE B-CELL LYMPHOMA
     Route: 065
  2. VINCRISTINE [Suspect]
     Active Substance: VINCRISTINE
     Indication: DIFFUSE LARGE B-CELL LYMPHOMA
     Route: 065
  3. DOXORUBICIN HYDROCHLORIDE. [Suspect]
     Active Substance: DOXORUBICIN HYDROCHLORIDE
     Indication: DIFFUSE LARGE B-CELL LYMPHOMA
     Route: 065
  4. PREDNISONE. [Suspect]
     Active Substance: PREDNISONE
     Indication: DIFFUSE LARGE B-CELL LYMPHOMA
     Route: 065
  5. RITUXIMAB [Suspect]
     Active Substance: RITUXIMAB
     Indication: DIFFUSE LARGE B-CELL LYMPHOMA
     Route: 065

REACTIONS (16)
  - Cerebral haemorrhage [Fatal]
  - Infection [Unknown]
  - Hypothyroidism [Unknown]
  - Neoplasm malignant [Fatal]
  - Pancreatic carcinoma [Fatal]
  - Myocardial infarction [Fatal]
  - Haematotoxicity [Unknown]
  - Death [Fatal]
  - Off label use [Unknown]
  - Product use issue [Unknown]
  - Cerebrovascular accident [Fatal]
  - Pneumonia [Fatal]
  - Hepatic failure [Unknown]
  - Cardiac failure chronic [Fatal]
  - Sepsis [Fatal]
  - Lung disorder [Unknown]
